APPROVED DRUG PRODUCT: SILDENAFIL CITRATE
Active Ingredient: SILDENAFIL CITRATE
Strength: EQ 20MG BASE
Dosage Form/Route: TABLET;ORAL
Application: A200149 | Product #001
Applicant: ACTAVIS GROUP PTC EHF
Approved: Feb 25, 2013 | RLD: No | RS: No | Type: DISCN